FAERS Safety Report 25813154 (Version 2)
Quarter: 2025Q3

REPORT INFORMATION
  Report Type: Report from Study
  Country: US (occurrence: US)
  Receive Date: 20250917
  Receipt Date: 20250927
  Transmission Date: 20251020
  Serious: No
  Sender: ABBVIE
  Company Number: US-ABBVIE-6462185

PATIENT
  Age: 73 Year
  Sex: Male

DRUGS (1)
  1. RINVOQ [Suspect]
     Active Substance: UPADACITINIB
     Indication: Rheumatoid arthritis
     Route: 048
     Dates: start: 20241021, end: 20250912

REACTIONS (8)
  - Onycholysis [Unknown]
  - Fatigue [Unknown]
  - Diarrhoea [Unknown]
  - Abdominal pain lower [Unknown]
  - Defaecation urgency [Unknown]
  - Pulmonary congestion [Unknown]
  - Cough [Unknown]
  - Nail disorder [Unknown]

NARRATIVE: CASE EVENT DATE: 20250301
